FAERS Safety Report 10029726 (Version 2)
Quarter: 2014Q2

REPORT INFORMATION
  Report Type: Spontaneous
  Country: JP (occurrence: JP)
  Receive Date: 20140322
  Receipt Date: 20140411
  Transmission Date: 20141212
  Serious: Yes (Other)
  Sender: FDA-Public Use
  Company Number: JP-009507513-1403JPN009340

PATIENT
  Age: 82 Year
  Sex: Female

DRUGS (4)
  1. COSOPT OPHTHALMIC SOLUTION [Suspect]
     Indication: INTRAOCULAR PRESSURE INCREASED
     Dosage: DAILY DOSAGE UNKNOWN, BID
     Route: 047
     Dates: start: 20140117, end: 20140227
  2. TAPROS [Concomitant]
     Indication: INTRAOCULAR PRESSURE INCREASED
     Dosage: DAILY DOSAGE UNKNOWN, QD
     Route: 047
     Dates: start: 20131115, end: 20140227
  3. HYALEIN [Concomitant]
     Dosage: DAILY DOSAGE UNKNOWN
     Route: 047
  4. DIQUAS [Concomitant]
     Dosage: DAILY DOSAGE UNKNOWN
     Route: 047

REACTIONS (3)
  - Ocular pemphigoid [Not Recovered/Not Resolved]
  - Conjunctival adhesion [Unknown]
  - Corneal disorder [Unknown]
